FAERS Safety Report 15862398 (Version 1)
Quarter: 2019Q1

REPORT INFORMATION
  Report Type: Spontaneous
  Country: DE (occurrence: DE)
  Receive Date: 20190124
  Receipt Date: 20190124
  Transmission Date: 20190417
  Serious: Yes (Other)
  Sender: FDA-Public Use
  Company Number: DE-PURDUE-GBR-2019-0063494

PATIENT
  Age: 8 Week
  Sex: Male
  Weight: 448.98 kg

DRUGS (4)
  1. ESIDRIX [Suspect]
     Active Substance: HYDROCHLOROTHIAZIDE
     Indication: BRONCHOPULMONARY DYSPLASIA
     Dosage: 2.5 MG/KG/D
     Route: 048
     Dates: start: 2002, end: 20020908
  2. MULTIBIONTA                        /00111701/ [Concomitant]
     Active Substance: VITAMINS
     Indication: HYPOVITAMINOSIS
     Dates: start: 20020808, end: 20020906
  3. THEOPHYLLINE [Suspect]
     Active Substance: THEOPHYLLINE ANHYDROUS
     Indication: APNOEA
     Dosage: 4.9 MG/KG/D
     Route: 048
  4. ALDACTONE [Suspect]
     Active Substance: SPIRONOLACTONE
     Indication: BRONCHOPULMONARY DYSPLASIA
     Dosage: 4 MG/KG/D
     Route: 048
     Dates: start: 2002, end: 20020908

REACTIONS (1)
  - Skin exfoliation [Recovered/Resolved]

NARRATIVE: CASE EVENT DATE: 20020903
